FAERS Safety Report 6524176-5 (Version None)
Quarter: 2009Q4

REPORT INFORMATION
  Report Type: 
  Country: None (occurrence: None)
  Receive Date: 20091231
  Receipt Date: 20091221
  Transmission Date: 20100525
  Serious: Yes (Death, Other)
  Sender: FDA-Public Use
  Company Number: US-GENENTECH-296210

PATIENT

DRUGS (2)
  1. RITUXAN [Suspect]
     Indication: NON-HODGKIN'S LYMPHOMA
     Dosage: 375 MG/M2, Q4W
     Route: 065
  2. BORTEZOMIB [Suspect]
     Indication: LYMPHOMA
     Dosage: 1.3 MG/M2, UNK
     Route: 065

REACTIONS (16)
  - ABDOMINAL PAIN [None]
  - DECREASED APPETITE [None]
  - DIARRHOEA [None]
  - DYSPNOEA [None]
  - FATIGUE [None]
  - HEADACHE [None]
  - METABOLIC ACIDOSIS [None]
  - MULTI-ORGAN FAILURE [None]
  - NAUSEA [None]
  - NEUROPATHY PERIPHERAL [None]
  - NEUTROPENIA [None]
  - RESPIRATORY FAILURE [None]
  - SEPSIS [None]
  - SEPTIC SHOCK [None]
  - THROMBOCYTOPENIA [None]
  - VOMITING [None]
